FAERS Safety Report 26160197 (Version 1)
Quarter: 2025Q4

REPORT INFORMATION
  Report Type: Spontaneous
  Country: US (occurrence: None)
  Receive Date: 20251216
  Receipt Date: 20251216
  Transmission Date: 20260118
  Serious: No
  Sender: ENDO
  Company Number: US-ENDO USA, INC.-2025-001657

PATIENT
  Sex: Male
  Weight: 77.551 kg

DRUGS (10)
  1. XIAFLEX [Suspect]
     Active Substance: COLLAGENASE CLOSTRIDIUM HISTOLYTICUM
     Indication: Peyronie^s disease
     Dosage: UNK UNKNOWN, SINGLE (CYCLE 1, INJECTION 1, FIRST TREATMENT COURSE)
     Dates: start: 20241011, end: 20241011
  2. XIAFLEX [Suspect]
     Active Substance: COLLAGENASE CLOSTRIDIUM HISTOLYTICUM
     Dosage: UNK UNKNOWN, SINGLE (CYCLE 1, INJECTION 2, FIRST TREATMENT COURSE)
     Dates: start: 20241014, end: 20241014
  3. XIAFLEX [Suspect]
     Active Substance: COLLAGENASE CLOSTRIDIUM HISTOLYTICUM
     Dosage: UNK UNKNOWN, SINGLE (CYCLE 2, INJECTION 1, FIRST TREATMENT COURSE)
     Dates: start: 20241122, end: 20241122
  4. XIAFLEX [Suspect]
     Active Substance: COLLAGENASE CLOSTRIDIUM HISTOLYTICUM
     Dosage: UNK UNKNOWN, SINGLE (CYCLE 2, INJECTION 2, FIRST TREATMENT COURSE)
     Dates: start: 20241125, end: 20241125
  5. XIAFLEX [Suspect]
     Active Substance: COLLAGENASE CLOSTRIDIUM HISTOLYTICUM
     Dosage: UNK UNKNOWN, SINGLE (CYCLE 3, INJECTION 1, FIRST TREATMENT COURSE)
     Dates: start: 20250106, end: 20250106
  6. XIAFLEX [Suspect]
     Active Substance: COLLAGENASE CLOSTRIDIUM HISTOLYTICUM
     Dosage: UNK UNKNOWN, SINGLE (CYCLE 3, INJECTION 2, FIRST TREATMENT COURSE)
     Dates: start: 20250109, end: 20250109
  7. XIAFLEX [Suspect]
     Active Substance: COLLAGENASE CLOSTRIDIUM HISTOLYTICUM
     Dosage: UNK UNKNOWN, SINGLE (CYCLE 4, INJECTION 1, FIRST TREATMENT COURSE)
     Dates: start: 20250224, end: 20250224
  8. XIAFLEX [Suspect]
     Active Substance: COLLAGENASE CLOSTRIDIUM HISTOLYTICUM
     Dosage: UNK UNKNOWN, SINGLE (CYCLE 4, INJECTION 2, FIRST TREATMENT COURSE)
     Dates: start: 20250227, end: 20250227
  9. XIAFLEX [Suspect]
     Active Substance: COLLAGENASE CLOSTRIDIUM HISTOLYTICUM
     Dosage: UNK UNKNOWN, SINGLE (CYCLE 1, INJECTION 1, SECOND TREATMENT COURSE)
     Dates: start: 20250707, end: 20250707
  10. TRIMIX (ALPROSTADIL\PAPAVERINE\PHENTOLAMINE) [Concomitant]
     Active Substance: ALPROSTADIL\PAPAVERINE\PHENTOLAMINE
     Indication: Erectile dysfunction
     Dosage: UNK UNKNOWN, UNKNOWN
     Route: 065

REACTIONS (7)
  - Swelling [Unknown]
  - Peyronie^s disease [Not Recovered/Not Resolved]
  - Penile swelling [Recovered/Resolved]
  - Penile contusion [Recovered/Resolved]
  - Penile blister [Recovered/Resolved]
  - Penile haematoma [Recovered/Resolved]
  - Drug effect less than expected [Not Recovered/Not Resolved]

NARRATIVE: CASE EVENT DATE: 20250101
